FAERS Safety Report 25511504 (Version 1)
Quarter: 2025Q3

REPORT INFORMATION
  Report Type: Spontaneous
  Country: US (occurrence: US)
  Receive Date: 20250703
  Receipt Date: 20250703
  Transmission Date: 20251021
  Serious: No
  Sender: UPSHER SMITH LABORATORIES
  Company Number: US-UPSHER-SMITH LABORATORIES, LLC-20241200291

PATIENT
  Age: 1 Year
  Sex: Male

DRUGS (1)
  1. VIGADRONE [Suspect]
     Active Substance: VIGABATRIN
     Indication: Infantile spasms
     Route: 065
     Dates: start: 20231216

REACTIONS (3)
  - Illness [Unknown]
  - Accidental overdose [Unknown]
  - Pyrexia [Unknown]

NARRATIVE: CASE EVENT DATE: 20241201
